FAERS Safety Report 20332328 (Version 2)
Quarter: 2022Q3

REPORT INFORMATION
  Report Type: Spontaneous
  Country: CA (occurrence: None)
  Receive Date: 20220113
  Receipt Date: 20220708
  Transmission Date: 20221027
  Serious: Yes (Hospitalization)
  Sender: FDA-Public Use
  Company Number: 2022A015093

PATIENT
  Age: 78 Year
  Sex: Female

DRUGS (17)
  1. VAXZEVRIA [Suspect]
     Active Substance: AZD-1222
     Dosage: 10 DOSES OF 0.5 ML
     Route: 030
  2. CALQUENCE [Suspect]
     Active Substance: ACALABRUTINIB
     Indication: Chronic lymphocytic leukaemia
     Route: 048
  3. CALQUENCE [Suspect]
     Active Substance: ACALABRUTINIB
     Indication: Chronic lymphocytic leukaemia
     Route: 048
  4. OMEPRAZOLE [Suspect]
     Active Substance: OMEPRAZOLE
     Route: 048
  5. IMODIUM [Concomitant]
     Active Substance: LOPERAMIDE HYDROCHLORIDE
     Route: 065
  6. CEPHALEXIN [Concomitant]
     Active Substance: CEPHALEXIN
     Route: 065
  7. AMLODIPINE [Concomitant]
     Active Substance: AMLODIPINE BESYLATE
     Route: 065
  8. ASPIRIN [Concomitant]
     Active Substance: ASPIRIN
     Route: 065
  9. CITALOPRAM [Concomitant]
     Active Substance: CITALOPRAM HYDROBROMIDE
  10. CODEINE [Concomitant]
     Active Substance: CODEINE
     Route: 065
  11. DOMPERIDONE [Concomitant]
     Active Substance: DOMPERIDONE
  12. FERAMAX POWDER WATER SOLUBLE POLYSACCHARIDE -IRON COMPLEX [Concomitant]
  13. ISOSORBIDE MONONITRATE [Concomitant]
     Active Substance: ISOSORBIDE MONONITRATE
  14. METOPROLOL [Concomitant]
     Active Substance: METOPROLOL
     Route: 065
  15. RANITIDINE [Concomitant]
     Active Substance: RANITIDINE
  16. ALBUTEROL [Concomitant]
     Active Substance: ALBUTEROL
  17. UMECLIDINIUM BROMIDE [Concomitant]
     Active Substance: UMECLIDINIUM BROMIDE

REACTIONS (11)
  - Drug interaction [Not Recovered/Not Resolved]
  - Abdominal discomfort [Not Recovered/Not Resolved]
  - Dyspepsia [Not Recovered/Not Resolved]
  - Gastrooesophageal reflux disease [Not Recovered/Not Resolved]
  - Gastroenteritis bacterial [Not Recovered/Not Resolved]
  - Injection site infection [Not Recovered/Not Resolved]
  - Localised infection [Not Recovered/Not Resolved]
  - Illness [Not Recovered/Not Resolved]
  - Diarrhoea [Not Recovered/Not Resolved]
  - Nausea [Not Recovered/Not Resolved]
  - Vomiting [Not Recovered/Not Resolved]
